FAERS Safety Report 21981149 (Version 4)
Quarter: 2023Q2

REPORT INFORMATION
  Report Type: Spontaneous
  Country: CA (occurrence: CA)
  Receive Date: 20230211
  Receipt Date: 20230410
  Transmission Date: 20230722
  Serious: Yes (Other)
  Sender: FDA-Public Use
  Company Number: CA-CELLTRION INC.-2022CA008834

PATIENT

DRUGS (11)
  1. INFLECTRA [Suspect]
     Active Substance: INFLIXIMAB-DYYB
     Indication: Colitis ulcerative
     Dosage: 700 MG, EVERY 6 WEEKS 0, 2, 6 WEEKS THEN EVERY 6 WEEKS
     Route: 042
     Dates: start: 20170511, end: 20191106
  2. INFLECTRA [Suspect]
     Active Substance: INFLIXIMAB-DYYB
     Dosage: 400 MG, 0, 2, 6 WEEKS THEN EVERY 6 WEEKS
     Route: 042
     Dates: start: 20170511, end: 20170621
  3. INFLECTRA [Suspect]
     Active Substance: INFLIXIMAB-DYYB
     Dosage: 10 MG/KG, (700MG) EVERY 6 WEEKS
     Route: 042
     Dates: start: 20170803, end: 20181106
  4. INFLECTRA [Suspect]
     Active Substance: INFLIXIMAB-DYYB
     Dosage: 10 MG/KG
     Route: 042
     Dates: start: 20190129
  5. INFLECTRA [Suspect]
     Active Substance: INFLIXIMAB-DYYB
     Dosage: 10 MG/KG, EVERY 8 WEEKS
     Route: 042
     Dates: start: 20190129
  6. INFLECTRA [Suspect]
     Active Substance: INFLIXIMAB-DYYB
     Dosage: 900 MG( SUPPOSED TO RECEIVE 10 MG/KG)
     Route: 042
     Dates: start: 20220428
  7. INFLECTRA [Suspect]
     Active Substance: INFLIXIMAB-DYYB
     Dosage: 10 MG/KG, EVERY 8 WEEKS
     Route: 042
     Dates: start: 20221206
  8. INFLECTRA [Suspect]
     Active Substance: INFLIXIMAB-DYYB
     Dosage: 10 MG/KG (890 MG), EVERY 8 WEEKS
     Route: 042
     Dates: start: 20230209
  9. IMURAN [Concomitant]
     Active Substance: AZATHIOPRINE
     Dosage: UNK
  10. PREDNISONE [Concomitant]
     Active Substance: PREDNISONE
     Dosage: UNK
  11. PREDNISONE [Concomitant]
     Active Substance: PREDNISONE
     Dosage: 1 DF, UNKNOWN

REACTIONS (10)
  - Retinal detachment [Recovered/Resolved]
  - Sinusitis bacterial [Recovered/Resolved]
  - Off label use [Unknown]
  - Off label use [Unknown]
  - Intentional product use issue [Unknown]
  - Incorrect dose administered [Unknown]
  - Pyrexia [Recovered/Resolved]
  - Nasal discharge discolouration [Not Recovered/Not Resolved]
  - Sinus pain [Not Recovered/Not Resolved]
  - Vision blurred [Not Recovered/Not Resolved]

NARRATIVE: CASE EVENT DATE: 20220428
